FAERS Safety Report 6441169-7 (Version None)
Quarter: 2009Q4

REPORT INFORMATION
  Report Type: 
  Country: None (occurrence: None)
  Receive Date: 20091113
  Receipt Date: 20091113
  Transmission Date: 20100525
  Serious: Yes (Hospitalization)
  Sender: FDA-Public Use
  Company Number: None

PATIENT
  Age: 83 Year
  Sex: Female
  Weight: 72.5755 kg

DRUGS (4)
  1. HERCEPTIN [Suspect]
     Indication: BREAST CANCER
     Dosage: 43MG EVERY 3 WEEKS IV DRIP
     Route: 041
     Dates: start: 20090212, end: 20091022
  2. LISINOPRIL [Concomitant]
  3. LEVOXYL [Concomitant]
  4. TAMOXIFEN CITRATE [Concomitant]

REACTIONS (5)
  - ASTHENIA [None]
  - CARDIAC FAILURE CONGESTIVE [None]
  - CHEST PAIN [None]
  - RENAL FAILURE ACUTE [None]
  - TROPONIN INCREASED [None]
